FAERS Safety Report 11793888 (Version 1)
Quarter: 2015Q4

REPORT INFORMATION
  Report Type: Spontaneous
  Country: US (occurrence: None)
  Receive Date: 20151201
  Receipt Date: 20151201
  Transmission Date: 20160305
  Serious: Yes (Disabling, Other)
  Sender: FDA-Public Use
  Company Number: None

PATIENT
  Age: 64 Year
  Sex: Female
  Weight: 68.04 kg

DRUGS (7)
  1. CIPRO [Suspect]
     Active Substance: CIPROFLOXACIN HYDROCHLORIDE
     Indication: CYSTITIS
     Dosage: BY MOUTH, EVERY 2 MONTHS 2 X DAY
     Route: 048
     Dates: start: 2008, end: 2015
  2. CARDIZEM [Concomitant]
     Active Substance: DILTIAZEM HYDROCHLORIDE
  3. NEXIUM [Concomitant]
     Active Substance: ESOMEPRAZOLE MAGNESIUM
  4. ONE A DAY VITAMINS [Concomitant]
  5. CIPRO [Suspect]
     Active Substance: CIPROFLOXACIN HYDROCHLORIDE
     Indication: URINARY TRACT INFECTION
     Dosage: BY MOUTH, EVERY 2 MONTHS 2 X DAY
     Route: 048
     Dates: start: 2008, end: 2015
  6. CYMBALTA [Concomitant]
     Active Substance: DULOXETINE HYDROCHLORIDE
  7. MOTRIN [Concomitant]
     Active Substance: IBUPROFEN

REACTIONS (2)
  - Facial pain [None]
  - Trigeminal neuralgia [None]

NARRATIVE: CASE EVENT DATE: 2012
